FAERS Safety Report 5714943-X (Version None)
Quarter: 2008Q2

REPORT INFORMATION
  Report Type: 
  Country: None (occurrence: None)
  Receive Date: 20080423
  Receipt Date: 20080418
  Transmission Date: 20081010
  Serious: Yes (Life-Threatening, Hospitalization)
  Sender: FDA-Public Use
  Company Number: ES-ROCHE-557724

PATIENT
  Age: 80 Year
  Sex: Female

DRUGS (6)
  1. TORSEMIDE [Suspect]
     Indication: HYPERTENSION
     Route: 048
  2. CARVEDILOL [Interacting]
     Indication: HYPERTENSION
     Route: 048
     Dates: end: 20080301
  3. SPIRONOLACTONE [Interacting]
     Indication: HYPERTENSION
     Route: 048
  4. DIGOXIN [Interacting]
     Route: 048
  5. SINTROM [Concomitant]
  6. ALOPURINOL [Concomitant]
     Indication: GOUT

REACTIONS (3)
  - BRADYCARDIA [None]
  - DRUG LEVEL INCREASED [None]
  - VOMITING [None]
